FAERS Safety Report 25088685 (Version 1)
Quarter: 2025Q1

REPORT INFORMATION
  Report Type: Spontaneous
  Country: US (occurrence: None)
  Receive Date: 20250317
  Receipt Date: 20250317
  Transmission Date: 20250408
  Serious: Yes (Death)
  Sender: FDA-CTU
  Company Number: None

PATIENT
  Age: 64 Year
  Sex: Male

DRUGS (14)
  1. REPATHA [Suspect]
     Active Substance: EVOLOCUMAB
     Indication: Hypercholesterolaemia
     Dosage: 140 MG EVERY 2  WEEKS SUBCUTANEOUS
     Route: 058
     Dates: start: 20240124, end: 20250128
  2. ASPIRIN [Concomitant]
     Active Substance: ASPIRIN
  3. cYCLOBENZAPINE [Concomitant]
  4. ESZOPICLONE [Concomitant]
     Active Substance: ESZOPICLONE
  5. METOPROLOL [Concomitant]
     Active Substance: METOPROLOL
  6. AZELASTINE [Concomitant]
     Active Substance: AZELASTINE
  7. FAMOTIDINE [Concomitant]
     Active Substance: FAMOTIDINE
  8. GLIPIZIDE [Concomitant]
     Active Substance: GLIPIZIDE
  9. MIRALAX [Concomitant]
     Active Substance: POLYETHYLENE GLYCOL 3350
  10. VITAMINS [Concomitant]
     Active Substance: VITAMINS
  11. OXYCODONE [Concomitant]
     Active Substance: OXYCODONE
  12. PRAZOSIN [Concomitant]
     Active Substance: PRAZOSIN
     Indication: Hypercholesterolaemia
     Dosage: 140 MG EVERY 2  WEEKS SUBCUTANEOUS
     Route: 058
     Dates: start: 20240124, end: 20250128
  13. VITAMIN B-COMPLEX [Concomitant]
     Active Substance: DEXPANTHENOL\NIACINAMIDE\PYRIDOXINE HYDROCHLORIDE\RIBOFLAVIN 5^-PHOSPHATE SODIUM\THIAMINE HYDROCHLOR
     Indication: Hypercholesterolaemia
     Dosage: 140 MG EVERY 2  WEEKS SUBCUTANEOUS
     Route: 058
     Dates: start: 20240124, end: 20250128
  14. VITAMIN D2 [Concomitant]
     Active Substance: ERGOCALCIFEROL
     Indication: Hypercholesterolaemia
     Dosage: 140 MG EVERY 2  WEEKS SUBCUTANEOUS
     Route: 058
     Dates: start: 20240124, end: 20250128

REACTIONS (1)
  - Death [None]

NARRATIVE: CASE EVENT DATE: 20250217
